FAERS Safety Report 21102103 (Version 2)
Quarter: 2022Q3

REPORT INFORMATION
  Report Type: Spontaneous
  Country: NL (occurrence: NL)
  Receive Date: 20220719
  Receipt Date: 20220823
  Transmission Date: 20221026
  Serious: Yes (Other)
  Sender: FDA-Public Use
  Company Number: NL-ORGANON-O2206NLD002615

PATIENT
  Age: 36 Year
  Sex: Female
  Weight: 57 kg

DRUGS (1)
  1. ETONOGESTREL [Suspect]
     Active Substance: ETONOGESTREL
     Indication: Contraception
     Dosage: 1 IMPLANT IN LEFT UPPER ARM
     Route: 059
     Dates: start: 20220609, end: 20220627

REACTIONS (5)
  - Device expulsion [Recovered/Resolved]
  - Implant site atrophy [Unknown]
  - Implant site erythema [Recovered/Resolved]
  - Implant site inflammation [Recovered/Resolved]
  - Implant site warmth [Unknown]

NARRATIVE: CASE EVENT DATE: 20220601
